FAERS Safety Report 16342318 (Version 2)
Quarter: 2019Q2

REPORT INFORMATION
  Report Type: Spontaneous
  Country: US (occurrence: US)
  Receive Date: 20190522
  Receipt Date: 20190621
  Transmission Date: 20190711
  Serious: Yes (Hospitalization)
  Sender: FDA-Public Use
  Company Number: US-ROCHE-2269128

PATIENT
  Age: 54 Year
  Sex: Male

DRUGS (2)
  1. XOFLUZA [Suspect]
     Active Substance: BALOXAVIR MARBOXIL
     Indication: INFLUENZA
     Dosage: FREQUENCY: ONCE?2 TABS (80 MG)
     Route: 065
     Dates: start: 20190214, end: 20190214
  2. XOFLUZA [Suspect]
     Active Substance: BALOXAVIR MARBOXIL
     Dosage: 1 TIME
     Route: 048
     Dates: start: 20190214, end: 20190214

REACTIONS (2)
  - Cold sweat [Recovered/Resolved]
  - Pyrexia [Recovered/Resolved]

NARRATIVE: CASE EVENT DATE: 20190214
